FAERS Safety Report 24131342 (Version 2)
Quarter: 2024Q3

REPORT INFORMATION
  Report Type: Spontaneous
  Country: JP (occurrence: JP)
  Receive Date: 20240724
  Receipt Date: 20240823
  Transmission Date: 20241017
  Serious: Yes (Hospitalization)
  Sender: ACCORD
  Company Number: JP-MLMSERVICE-20240709-PI124619-00050-4

PATIENT
  Age: 96 Year
  Sex: Female
  Weight: 35 kg

DRUGS (2)
  1. AMLODIPINE [Suspect]
     Active Substance: AMLODIPINE BESYLATE
     Indication: Product used for unknown indication
     Dosage: AMLODIPINE 50 MG TABLET, 1 TAB, ONCE IN THE MORNING (STRENGTH: 50 MG)
     Route: 048
  2. MAGNESIUM OXIDE [Suspect]
     Active Substance: MAGNESIUM OXIDE
     Indication: Product used for unknown indication
     Dosage: MAGMITT 500 MG TABLET, 2 TABS, TWICE IN THE MORNING AND EVENING
     Route: 048

REACTIONS (1)
  - BRASH syndrome [Recovered/Resolved]
